FAERS Safety Report 10376757 (Version 1)
Quarter: 2014Q1

REPORT INFORMATION
  Report Type: Spontaneous
  Country: US (occurrence: None)
  Receive Date: 20140306
  Receipt Date: 20140306
  Transmission Date: 20141002
  Serious: Yes (Disabling)
  Sender: FDA-Public Use
  Company Number: 163-21880-13040360

PATIENT
  Age: 75 Year
  Sex: Male

DRUGS (19)
  1. REVLIMID (LENALIDOMIDE) (CAPSULES) [Suspect]
     Indication: PLASMA CELL MYELOMA
     Dosage: 15 MG, 21 IN 21 D, PO
     Route: 048
     Dates: start: 20130307
  2. ACYCLOVIR (ACICLOVIR) [Concomitant]
  3. LYRICA (PREGABALIN) [Concomitant]
  4. VITAMIN B6 (PYRIDOXINE HYDROCHLORIDE) [Concomitant]
  5. METOPROLOL (METOPROLOL) [Concomitant]
  6. GABAPENTIN (GABAPENTIN) [Concomitant]
  7. VITAMIN C (ASCORBIC ACID) [Concomitant]
  8. DEXAMETHASONE (DEXAMETHASONE) [Concomitant]
  9. CRESTOR (ROSUVASTATIN) [Concomitant]
  10. ADVAIR DISKUS [Concomitant]
  11. ALEVE (NAPROXEN SODIUM) [Concomitant]
  12. POTASSIUM CHLORIDE (POTASSIUM CHLORIDE) [Concomitant]
  13. PRILOSEC (OMEPRAZOLE) [Concomitant]
  14. LASIX (FUROSEMIDE) [Concomitant]
  15. SPIRIVA (TIOTROPIUM BROMIDE) [Concomitant]
  16. CEFEPIME (CEFEPIME) [Concomitant]
  17. PYRIDOXINE (PYRIDOXINE) [Concomitant]
  18. ALBUTEROL (SALBUTAMOL) [Concomitant]
  19. FUROSEMIDE (FUROSEMIDE) [Concomitant]

REACTIONS (3)
  - Fatigue [None]
  - Dyspnoea [None]
  - Constipation [None]
